FAERS Safety Report 12242152 (Version 1)
Quarter: 2016Q2

REPORT INFORMATION
  Report Type: Spontaneous
  Country: FR (occurrence: FR)
  Receive Date: 20160406
  Receipt Date: 20160406
  Transmission Date: 20160815
  Serious: Yes (Hospitalization, Other)
  Sender: FDA-Public Use
  Company Number: FR-PFIZER INC-2016187708

PATIENT
  Age: 43 Year
  Sex: Female

DRUGS (9)
  1. PREDNISOLONE. [Concomitant]
     Active Substance: PREDNISOLONE
     Indication: PHARYNGITIS
     Dosage: UNK
     Dates: start: 20151027, end: 20151101
  2. BACLOFEN ZENTIVA [Concomitant]
     Active Substance: BACLOFEN
  3. MINESSE [Concomitant]
     Active Substance: ETHINYL ESTRADIOL\GESTODENE
     Indication: CONTRACEPTION
  4. LACTULOSE. [Concomitant]
     Active Substance: LACTULOSE
  5. SALAZOPYRINE [Suspect]
     Active Substance: SULFASALAZINE
     Indication: ANKYLOSING SPONDYLITIS
     Dosage: UNK
     Route: 048
     Dates: start: 20151010, end: 20151108
  6. DICLOFENAC [Concomitant]
     Active Substance: DICLOFENAC
  7. UVEDOSE [Concomitant]
     Active Substance: CHOLECALCIFEROL
  8. ESOMEPRAZOLE [Concomitant]
     Active Substance: ESOMEPRAZOLE
  9. CEFPODOXIME [Suspect]
     Active Substance: CEFPODOXIME
     Indication: PHARYNGITIS
     Dosage: UNK
     Route: 048
     Dates: start: 20151027, end: 20151101

REACTIONS (2)
  - Drug reaction with eosinophilia and systemic symptoms [Recovered/Resolved]
  - Myocarditis [Recovered/Resolved]

NARRATIVE: CASE EVENT DATE: 201511
